FAERS Safety Report 24892179 (Version 2)
Quarter: 2025Q2

REPORT INFORMATION
  Report Type: Spontaneous
  Country: CZ (occurrence: CZ)
  Receive Date: 20250128
  Receipt Date: 20250415
  Transmission Date: 20250716
  Serious: Yes (Death, Hospitalization, Other)
  Sender: SANOFI AVENTIS
  Company Number: CZ-SA-2025SA024039

PATIENT
  Age: 14 Month
  Sex: Female

DRUGS (7)
  1. CEREZYME [Suspect]
     Active Substance: IMIGLUCERASE
     Indication: Gaucher^s disease type II
     Route: 065
     Dates: start: 20241108, end: 20250102
  2. LACTOBACILLUS REUTERI [Concomitant]
     Active Substance: LACTOBACILLUS REUTERI
  3. AZITHROMYCIN [Concomitant]
     Active Substance: AZITHROMYCIN
     Dosage: 4 ML, QD
  4. IBUPROFEN [Concomitant]
     Active Substance: IBUPROFEN
  5. Vigantol [Concomitant]
     Dosage: 1 DROP/ DAY
  6. PANADOL [Concomitant]
     Active Substance: ACETAMINOPHEN
  7. ACETAMINOPHEN [Concomitant]
     Active Substance: ACETAMINOPHEN

REACTIONS (13)
  - Respiratory failure [Fatal]
  - Dyspnoea [Fatal]
  - Pyrexia [Fatal]
  - Tachypnoea [Fatal]
  - Secretion discharge [Fatal]
  - Hypoxia [Fatal]
  - Productive cough [Fatal]
  - Respiration abnormal [Fatal]
  - Anaemia [Unknown]
  - Thrombocytopenia [Unknown]
  - Hepatic enzyme abnormal [Unknown]
  - Pneumoperitoneum [Unknown]
  - Haematochezia [Unknown]

NARRATIVE: CASE EVENT DATE: 20250112
